FAERS Safety Report 15190960 (Version 1)
Quarter: 2018Q3

REPORT INFORMATION
  Report Type: Spontaneous
  Country: DE (occurrence: DE)
  Receive Date: 20180724
  Receipt Date: 20180724
  Transmission Date: 20181010
  Serious: Yes (Hospitalization, Other)
  Sender: FDA-Public Use
  Company Number: DE-SAKK-2018SA166918AA

PATIENT
  Age: 52 Year
  Sex: Female
  Weight: 134 kg

DRUGS (10)
  1. FUROSEMIDE. [Concomitant]
     Active Substance: FUROSEMIDE
     Dosage: 40 MG, QD
     Route: 048
     Dates: start: 20160920
  2. SALBUTAMOL [Concomitant]
     Active Substance: ALBUTEROL
     Indication: ASTHMA
     Dosage: 1 DF, QD
     Route: 055
  3. DEXAMETHASONE. [Concomitant]
     Active Substance: DEXAMETHASONE
     Indication: PROPHYLAXIS
     Dosage: 8 MG
     Route: 048
     Dates: start: 20160922
  4. HERCEPTIN [Suspect]
     Active Substance: TRASTUZUMAB
     Indication: BREAST CANCER
     Dosage: 876 MG, Q3W
     Route: 042
     Dates: start: 20160922
  5. PERTUZUMAB. [Suspect]
     Active Substance: PERTUZUMAB
     Indication: BREAST CANCER
     Dosage: 420 MG, Q3W
     Route: 042
     Dates: start: 20160916, end: 20161109
  6. SPIRIVA [Concomitant]
     Active Substance: TIOTROPIUM BROMIDE MONOHYDRATE
     Indication: METASTASES TO PLEURA
     Dosage: 18 MG, QD
     Route: 055
     Dates: start: 201606
  7. OXYGEN. [Concomitant]
     Active Substance: OXYGEN
     Indication: METASTASES TO PLEURA
     Dosage: 24 U, QD
     Route: 045
     Dates: start: 20160906
  8. DOCETAXEL. [Suspect]
     Active Substance: DOCETAXEL
     Dosage: 150 MG, Q3W
     Route: 042
     Dates: start: 20160922
  9. PACLITAXEL. [Suspect]
     Active Substance: PACLITAXEL
     Dosage: 150 MG, Q3W
     Route: 042
     Dates: start: 20160924
  10. SYMBICORT [Concomitant]
     Active Substance: BUDESONIDE\FORMOTEROL FUMARATE DIHYDRATE
     Indication: METASTASES TO PLEURA
     Dosage: 2 DF, QD
     Route: 055
     Dates: start: 201606

REACTIONS (12)
  - Arthralgia [Recovered/Resolved]
  - Oesophageal candidiasis [Not Recovered/Not Resolved]
  - Gastritis [Not Recovered/Not Resolved]
  - Chills [Recovered/Resolved]
  - Pulmonary function test decreased [Recovered/Resolved]
  - Lethargy [Not Recovered/Not Resolved]
  - Productive cough [Recovered/Resolved]
  - Stomatitis [Recovered/Resolved]
  - Constipation [Recovered/Resolved]
  - Painful respiration [Recovered/Resolved]
  - Anaphylactic reaction [Recovered/Resolved]
  - Dysgeusia [Recovered/Resolved]

NARRATIVE: CASE EVENT DATE: 20160924
